FAERS Safety Report 8084656-0 (Version None)
Quarter: 2012Q1

REPORT INFORMATION
  Report Type: 
  Country: None (occurrence: None)
  Receive Date: 20120128
  Receipt Date: 20110310
  Transmission Date: 20120608
  Serious: No
  Sender: FDA-Public Use
  Company Number: US-ABBOTT-11P-163-0710855-00

PATIENT
  Sex: Female
  Weight: 81.72 kg

DRUGS (6)
  1. OXYCODONE HCL [Concomitant]
     Indication: PAIN
     Dosage: 6 IN1DAY;EVERY4 HRSAS NEEDED
     Route: 048
  2. OXYCODONE HCL [Concomitant]
  3. HUMIRA [Suspect]
     Indication: RHEUMATOID ARTHRITIS
     Route: 058
     Dates: start: 20030101
  4. HUMIRA [Suspect]
     Route: 058
     Dates: start: 20110225
  5. OPANA ER [Concomitant]
     Indication: PAIN
     Route: 048
  6. CORTISONE ACETATE [Concomitant]
     Indication: SCOLIOSIS
     Route: 014

REACTIONS (5)
  - CARPAL TUNNEL SYNDROME [None]
  - ERYTHEMA [None]
  - HYPOAESTHESIA [None]
  - RHEUMATOID ARTHRITIS [None]
  - PERIPHERAL COLDNESS [None]
